FAERS Safety Report 9320544 (Version 2)
Quarter: 2013Q3

REPORT INFORMATION
  Report Type: Spontaneous
  Country: US (occurrence: US)
  Receive Date: 20130531
  Receipt Date: 20130710
  Transmission Date: 20140515
  Serious: Yes (Death, Hospitalization)
  Sender: FDA-Public Use
  Company Number: US-ROCHE-1229444

PATIENT
  Sex: Female

DRUGS (2)
  1. XELODA [Suspect]
     Indication: COLON CANCER
     Dosage: FOR 14 DAYS, HOLD FOR 7 DAYS.
     Route: 065
  2. XELODA [Suspect]
     Dosage: FOR 14 DAYS THEN HOLD FOR 7DAYS
     Route: 048
     Dates: start: 20130405

REACTIONS (2)
  - Death [Fatal]
  - Anaemia [Unknown]
